FAERS Safety Report 9679234 (Version 1)
Quarter: 2013Q4

REPORT INFORMATION
  Report Type: Report from Study
  Country: CA (occurrence: CA)
  Receive Date: 20131108
  Receipt Date: 20131108
  Transmission Date: 20140711
  Serious: Yes (Other)
  Sender: FDA-Public Use
  Company Number: CA-ROCHE-1298674

PATIENT
  Sex: Female
  Weight: 103 kg

DRUGS (11)
  1. ACTEMRA [Suspect]
     Indication: RHEUMATOID ARTHRITIS
     Route: 042
     Dates: start: 20120306
  2. ACTEMRA [Suspect]
     Route: 042
     Dates: start: 20121212
  3. ACTEMRA [Suspect]
     Route: 042
     Dates: start: 20130117
  4. ACTEMRA [Suspect]
     Route: 042
     Dates: start: 20130606
  5. CELEBREX [Concomitant]
  6. PREDNISONE [Concomitant]
  7. ATIVAN [Concomitant]
  8. TYLENOL ARTHRITIS [Concomitant]
  9. EFFEXOR [Concomitant]
  10. NEXIUM [Concomitant]
  11. ATORVASTATIN [Concomitant]

REACTIONS (1)
  - Surgery [Unknown]
